FAERS Safety Report 6666892-0 (Version None)
Quarter: 2010Q1

REPORT INFORMATION
  Report Type: 
  Country: None (occurrence: None)
  Receive Date: 20100331
  Receipt Date: 20100319
  Transmission Date: 20100710
  Serious: Yes (Other)
  Sender: FDA-Public Use
  Company Number: 144-20484-10021193

PATIENT
  Age: 34 Year
  Sex: Female
  Weight: 75.5 kg

DRUGS (5)
  1. INNOHEP [Suspect]
     Indication: PROPHYLAXIS OF ABORTION
     Dosage: 4500 IU (4500 IU, 1 IN 1 D), SUBCUTANEOUS
     Route: 058
     Dates: start: 20070706, end: 20070911
  2. INNOHEP [Suspect]
     Indication: PROTEIN S DEFICIENCY
     Dosage: 4500 IU (4500 IU, 1 IN 1 D), SUBCUTANEOUS
     Route: 058
     Dates: start: 20070706, end: 20070911
  3. AAS ASPIRIN (ACETYLSALICYLIC ACID) [Concomitant]
  4. FOLIC ACID [Concomitant]
  5. IODINE (IODINE) [Concomitant]

REACTIONS (4)
  - ABORTION SPONTANEOUS [None]
  - DRUG EXPOSURE DURING PREGNANCY [None]
  - HAEMORRHAGE [None]
  - INTRA-UTERINE DEATH [None]
